FAERS Safety Report 6647149-0 (Version None)
Quarter: 2010Q1

REPORT INFORMATION
  Report Type: 
  Country: None (occurrence: None)
  Receive Date: 20100323
  Receipt Date: 20100318
  Transmission Date: 20100710
  Serious: Yes (Death)
  Sender: FDA-Public Use
  Company Number: PHHY2010JP09030

PATIENT
  Sex: Female

DRUGS (7)
  1. ZOLEDRONATE T29581+ [Suspect]
     Indication: METASTASES TO BONE
     Dosage: 4 MG DILUTED TO 100 ML EVERY FOUR WEEKS
     Route: 042
     Dates: start: 20080108, end: 20090310
  2. FEMARA [Concomitant]
     Indication: BREAST CANCER
     Dosage: 2.5 MG, UNK
     Route: 048
     Dates: start: 20080121, end: 20090107
  3. XELODA [Concomitant]
     Indication: BREAST CANCER
     Dosage: 1800 MG, UNK
     Route: 048
     Dates: start: 20080122, end: 20090320
  4. XELODA [Concomitant]
     Dosage: 1800 MG, UNK
     Route: 048
     Dates: start: 20080122
  5. UFT [Concomitant]
     Indication: BREAST CANCER
     Dosage: 300 MG, UNK
     Route: 048
     Dates: start: 20080724, end: 20090107
  6. NOLVADEX [Concomitant]
     Indication: BREAST CANCER
     Dosage: 20 MG, UNK
     Route: 048
     Dates: start: 20090113, end: 20090320
  7. PYDOXAL [Concomitant]
     Dosage: 40 MG, UNK
     Route: 048
     Dates: start: 20090113, end: 20090320

REACTIONS (2)
  - METASTASES TO LUNG [None]
  - RESPIRATORY FAILURE [None]
